FAERS Safety Report 12897708 (Version 1)
Quarter: 2016Q4

REPORT INFORMATION
  Report Type: Spontaneous
  Country: JP (occurrence: JP)
  Receive Date: 20161031
  Receipt Date: 20161031
  Transmission Date: 20170207
  Serious: Yes (Hospitalization)
  Sender: FDA-Public Use
  Company Number: JP-TEVA-707453ISR

PATIENT
  Age: 25 Year
  Sex: Female

DRUGS (1)
  1. DIPHENHYDRAMINE. [Suspect]
     Active Substance: DIPHENHYDRAMINE
     Indication: OVERDOSE
     Dosage: 99 TABLETS
     Route: 065

REACTIONS (6)
  - Toxicity to various agents [Recovered/Resolved]
  - Opsoclonus myoclonus [Recovered/Resolved]
  - Generalised tonic-clonic seizure [Recovered/Resolved]
  - Dry mouth [Recovered/Resolved]
  - Overdose [Recovered/Resolved]
  - Arrhythmia [Recovered/Resolved]
